FAERS Safety Report 7025610-7 (Version None)
Quarter: 2010Q4

REPORT INFORMATION
  Report Type: 
  Country: None (occurrence: None)
  Receive Date: 20101003
  Receipt Date: 20100929
  Transmission Date: 20110411
  Serious: Yes (Death)
  Sender: FDA-Public Use
  Company Number: PHHY2010CA64902

PATIENT
  Sex: Female

DRUGS (2)
  1. ACLASTA [Suspect]
  2. ACLASTA [Suspect]

REACTIONS (1)
  - DEATH [None]
